FAERS Safety Report 24387393 (Version 1)
Quarter: 2024Q4

REPORT INFORMATION
  Report Type: Report from Study
  Country: US (occurrence: US)
  Receive Date: 20241002
  Receipt Date: 20241002
  Transmission Date: 20250115
  Serious: Yes (Hospitalization)
  Sender: GILEAD
  Company Number: US-GILEAD-2024-0689416

PATIENT
  Age: 22 Year
  Sex: Male

DRUGS (2)
  1. AZTREONAM LYSINE [Suspect]
     Active Substance: AZTREONAM LYSINE
     Indication: Cystic fibrosis
     Dosage: 75 MG, TID ( INHALE 1 VIAL (75MG/VL) VIA ALTERA NEBULIZER, FOR 28 DAYS ON AND 28 DAYS OFF)
     Route: 055
     Dates: start: 202001
  2. DUPIXENT [Concomitant]
     Active Substance: DUPILUMAB
     Dosage: UNKNOWN

REACTIONS (2)
  - Haemoptysis [Recovered/Resolved]
  - Respiratory tract irritation [Recovered/Resolved]
